FAERS Safety Report 7301868-1 (Version None)
Quarter: 2011Q1

REPORT INFORMATION
  Report Type: 
  Country: None (occurrence: None)
  Receive Date: 20110218
  Receipt Date: 20110216
  Transmission Date: 20110831
  Serious: Yes (Death)
  Sender: FDA-Public Use
  Company Number: BR-GENZYME-FLUD-1000730

PATIENT
  Age: 43 Year
  Sex: Female

DRUGS (6)
  1. FILGRASTIM [Concomitant]
     Indication: NEUTROPENIA
     Dosage: 5 UG/KG FROM DAY +2 UNTIL ANC MET REQUIREMENTS
     Route: 065
  2. METHOTREXATE [Concomitant]
     Indication: PROPHYLAXIS AGAINST GRAFT VERSUS HOST DISEASE
     Dosage: 5 MG/M2, ON DAYS 1,3,6,11 POST TRANSPLANT
     Route: 065
  3. FLUDARA [Suspect]
     Indication: BONE MARROW CONDITIONING REGIMEN
     Dosage: 40 MG/M2 OVER 60 MINUTES, QD X 4
     Route: 042
  4. TACROLIMUS [Concomitant]
     Indication: PROPHYLAXIS AGAINST GRAFT VERSUS HOST DISEASE
     Route: 065
  5. PHENYTOIN [Concomitant]
     Indication: PROPHYLAXIS
     Route: 065
  6. BUSULFAN [Suspect]
     Indication: BONE MARROW CONDITIONING REGIMEN
     Dosage: 130 MG/M2, OVER 3 HRS QD DAYS -6 TO -3
     Route: 042

REACTIONS (3)
  - MULTI-ORGAN FAILURE [None]
  - ACUTE GRAFT VERSUS HOST DISEASE [None]
  - THROMBOTIC THROMBOCYTOPENIC PURPURA [None]
